FAERS Safety Report 5113983-1 (Version None)
Quarter: 2006Q3

REPORT INFORMATION
  Report Type: 
  Country: None (occurrence: None)
  Receive Date: 20060925
  Receipt Date: 20060914
  Transmission Date: 20061208
  Serious: Yes (Other)
  Sender: FDA-Public Use
  Company Number: PHEH2006US11855

PATIENT
  Sex: Female

DRUGS (2)
  1. GLEEVEC [Suspect]
     Indication: CHRONIC MYELOID LEUKAEMIA
     Dosage: 200 MG, QD
     Route: 048
     Dates: end: 20060101
  2. GLEEVEC [Suspect]
     Dosage: 400 MG, QD
     Route: 048
     Dates: start: 20060101, end: 20060127

REACTIONS (5)
  - CATARACT OPERATION [None]
  - CHEST PAIN [None]
  - DYSPNOEA EXERTIONAL [None]
  - EYE OPERATION [None]
  - VISUAL ACUITY REDUCED [None]
